FAERS Safety Report 18570914 (Version 1)
Quarter: 2020Q4

REPORT INFORMATION
  Report Type: Spontaneous
  Country: US (occurrence: US)
  Receive Date: 20201202
  Receipt Date: 20201202
  Transmission Date: 20210114
  Serious: No
  Sender: FDA-Public Use
  Company Number: US-ROCHE-2703743

PATIENT
  Age: 26 Year

DRUGS (3)
  1. RISDIPLAM. [Suspect]
     Active Substance: RISDIPLAM
     Indication: SPINAL MUSCULAR ATROPHY
     Route: 065
  2. SPINRAZA [Concomitant]
     Active Substance: NUSINERSEN
     Dates: start: 2018
  3. POTASSIUM [Concomitant]
     Active Substance: POTASSIUM

REACTIONS (9)
  - Malaise [Unknown]
  - Insomnia [Unknown]
  - Asthenia [Unknown]
  - Abdominal pain upper [Unknown]
  - Pain [Unknown]
  - Fatigue [Unknown]
  - Feeling abnormal [Unknown]
  - Arthritis [Unknown]
  - Pyrexia [Unknown]
